FAERS Safety Report 11952310 (Version 1)
Quarter: 2016Q1

REPORT INFORMATION
  Report Type: Spontaneous
  Country: CA (occurrence: CA)
  Receive Date: 20160126
  Receipt Date: 20160126
  Transmission Date: 20160526
  Serious: Yes (Death)
  Sender: FDA-Public Use
  Company Number: CA-TEVA-628152ACC

PATIENT
  Age: 72 Year
  Sex: Male

DRUGS (9)
  1. ATORVASTATIN [Concomitant]
     Active Substance: ATORVASTATIN
  2. FINASTERIDE. [Concomitant]
     Active Substance: FINASTERIDE
  3. NOVO-CLINDAMYCIN [Suspect]
     Active Substance: CLINDAMYCIN HYDROCHLORIDE
     Indication: WOUND INFECTION
     Dosage: 1200 MILLIGRAM DAILY;
     Route: 048
  4. INTELENCE [Suspect]
     Active Substance: ETRAVIRINE
     Indication: HIV INFECTION
     Dosage: 400 MILLIGRAM DAILY;
     Route: 048
  5. INTELENCE [Concomitant]
     Active Substance: ETRAVIRINE
  6. ALLOPURINOL. [Concomitant]
     Active Substance: ALLOPURINOL
  7. TIVICAY [Concomitant]
     Active Substance: DOLUTEGRAVIR SODIUM
  8. NORVIR [Concomitant]
     Active Substance: RITONAVIR
  9. PREZISTA [Concomitant]
     Active Substance: DARUNAVIR ETHANOLATE

REACTIONS (8)
  - Oesophageal pain [Fatal]
  - Burn oesophageal [Fatal]
  - Oesophageal obstruction [Fatal]
  - Dysphagia [Fatal]
  - Diarrhoea [Fatal]
  - Foreign body [Fatal]
  - Dehydration [Fatal]
  - Pneumonia [Fatal]
